FAERS Safety Report 10359873 (Version 1)
Quarter: 2014Q3

REPORT INFORMATION
  Report Type: Spontaneous
  Country: JP (occurrence: JP)
  Receive Date: 20140804
  Receipt Date: 20140804
  Transmission Date: 20150326
  Serious: Yes (Other)
  Sender: FDA-Public Use
  Company Number: CHPA2014JP009973

PATIENT
  Sex: Male

DRUGS (7)
  1. PURSENNID [Suspect]
     Active Substance: SENNOSIDES A AND B CALCIUM
     Dosage: UNK
     Route: 048
  2. FERROMIA [Suspect]
     Active Substance: FERROUS CITRATE
     Dosage: UNK
     Route: 048
  3. LOXONIN [Suspect]
     Active Substance: LOXOPROFEN SODIUM
     Dosage: UNK
     Route: 048
  4. DEPAS [Suspect]
     Active Substance: ETIZOLAM
     Dosage: UNK
     Route: 048
  5. AMOBAN [Suspect]
     Active Substance: ZOPICLONE
     Dosage: UNK
     Route: 048
  6. ALESION [Suspect]
     Active Substance: EPINASTINE HYDROCHLORIDE
     Dosage: UNK
     Route: 048
  7. ZYLORIC [Suspect]
     Active Substance: ALLOPURINOL
     Dosage: UNK
     Route: 048

REACTIONS (3)
  - Drug administration error [Unknown]
  - Apnoea [Unknown]
  - Sputum increased [Unknown]

NARRATIVE: CASE EVENT DATE: 201312
